FAERS Safety Report 9492248 (Version 1)
Quarter: 2013Q3

REPORT INFORMATION
  Report Type: Spontaneous
  Country: CH (occurrence: CH)
  Receive Date: 20130830
  Receipt Date: 20130830
  Transmission Date: 20140515
  Serious: Yes (Death)
  Sender: FDA-Public Use
  Company Number: CH-PFIZER INC-2013249007

PATIENT
  Age: 82 Year
  Sex: Female
  Weight: 76 kg

DRUGS (10)
  1. FRAGMIN [Suspect]
     Indication: PROPHYLAXIS
     Dosage: 2500 IU, SINGLE
     Route: 040
     Dates: start: 20130807, end: 20130807
  2. THIOPENTAL [Suspect]
     Indication: ANAESTHESIA
     Dosage: 325 MG, SINGLE
     Route: 041
     Dates: start: 20130806, end: 20130806
  3. ISOFLURAN ^BAXTER^ [Suspect]
     Indication: ANAESTHESIA
     Dosage: 1 DF (1 VOLUME % OVER 8 AT 12L/MIN VIA RESPIRATORY SYSTEM (INTUBATION)
     Route: 055
     Dates: start: 20130806, end: 20130806
  4. PERFALGAN [Suspect]
     Indication: PAIN
     Dosage: 1 G, UNK
     Route: 041
     Dates: start: 20130806, end: 20130808
  5. NOVALGIN [Suspect]
     Indication: PAIN
     Dosage: 1 G, 1X/DAY
     Route: 040
     Dates: start: 20130806
  6. FENTANYL [Concomitant]
     Dosage: 0.7 MG, SINGLE
     Route: 041
     Dates: start: 20130806, end: 20130806
  7. METHADONE [Concomitant]
     Dosage: 7.5 MG, SINGLE
     Route: 041
     Dates: start: 20130806, end: 20130806
  8. ULTIVA [Concomitant]
     Dosage: 50 UG, SINGLE
     Route: 041
     Dates: start: 20130806, end: 20130806
  9. ATRACURIUM BESILATE [Concomitant]
     Dosage: 105 MG, SINGLE
     Route: 042
     Dates: start: 20130806, end: 20130806
  10. KALCIPOS-D [Concomitant]
     Dosage: 1 DF (500 MG / 800 UI), 1X/DAY
     Dates: end: 20130808

REACTIONS (4)
  - Pulmonary embolism [Fatal]
  - Hepatic failure [Fatal]
  - Renal failure acute [Fatal]
  - Thrombocytopenia [Fatal]
